FAERS Safety Report 24692816 (Version 2)
Quarter: 2025Q1

REPORT INFORMATION
  Report Type: Spontaneous
  Country: US (occurrence: US)
  Receive Date: 20241203
  Receipt Date: 20250203
  Transmission Date: 20250409
  Serious: Yes (Hospitalization)
  Sender: SK LIFE SCIENCE
  Company Number: US-SK LIFE SCIENCE, INC.-SKPVG-2024-002755

PATIENT

DRUGS (8)
  1. XCOPRI [Suspect]
     Active Substance: CENOBAMATE
     Indication: Epilepsy
     Route: 065
     Dates: start: 20240807
  2. XCOPRI [Suspect]
     Active Substance: CENOBAMATE
     Route: 065
  3. XCOPRI [Suspect]
     Active Substance: CENOBAMATE
     Route: 065
  4. XCOPRI [Suspect]
     Active Substance: CENOBAMATE
     Route: 065
  5. XCOPRI [Suspect]
     Active Substance: CENOBAMATE
     Route: 065
  6. XCOPRI [Suspect]
     Active Substance: CENOBAMATE
     Dosage: 200 MILLIGRAM, DAILY
     Route: 065
  7. DILANTIN [Suspect]
     Active Substance: PHENYTOIN
     Indication: Product used for unknown indication
     Dosage: 4 CAPSULES TOTAL 400 MILLIGRAM EACH EVENING
     Route: 065
     Dates: end: 20240808
  8. DILANTIN [Suspect]
     Active Substance: PHENYTOIN
     Dosage: 2 CAPSULES TOTAL 200 MILLIGRAM EACH EVENING
     Route: 065
     Dates: end: 20240808

REACTIONS (5)
  - Fall [Recovered/Resolved]
  - Balance disorder [Recovered/Resolved]
  - Tremor [Recovered/Resolved]
  - Cognitive disorder [Recovered/Resolved]
  - Overdose [Unknown]

NARRATIVE: CASE EVENT DATE: 20240808
